FAERS Safety Report 7926638-2 (Version None)
Quarter: 2011Q4

REPORT INFORMATION
  Report Type: 
  Country: None (occurrence: None)
  Receive Date: 20111118
  Receipt Date: 20111111
  Transmission Date: 20120403
  Serious: No
  Sender: FDA-Public Use
  Company Number: US-BIOGENIDEC-2011BI043414

PATIENT
  Sex: Female

DRUGS (1)
  1. AVONEX [Suspect]
     Indication: MULTIPLE SCLEROSIS
     Route: 030
     Dates: start: 20110527

REACTIONS (5)
  - OSTEOARTHRITIS [None]
  - MUSCULOSKELETAL PAIN [None]
  - SKIN DISCOLOURATION [None]
  - FALL [None]
  - PAIN IN EXTREMITY [None]
